FAERS Safety Report 19187938 (Version 1)
Quarter: 2021Q2

REPORT INFORMATION
  Report Type: Spontaneous
  Country: IN (occurrence: IN)
  Receive Date: 20210428
  Receipt Date: 20210428
  Transmission Date: 20210717
  Serious: Yes (Hospitalization, Other)
  Sender: FDA-Public Use
  Company Number: IN-LUPIN LIMITED-2021-05296

PATIENT
  Age: 28 Year
  Sex: Male

DRUGS (2)
  1. METHYLPREDNISOLONE. [Suspect]
     Active Substance: METHYLPREDNISOLONE
     Indication: ENDOCRINE OPHTHALMOPATHY
     Dosage: PULSE THERAPY WEEKLY
     Route: 042
  2. TRIAMCINOLONE ACETONIDE. [Suspect]
     Active Substance: TRIAMCINOLONE ACETONIDE
     Indication: ENDOCRINE OPHTHALMOPATHY
     Dosage: UNK, SINGLE
     Route: 031

REACTIONS (5)
  - Diplopia [Not Recovered/Not Resolved]
  - Eye infection fungal [Recovering/Resolving]
  - Periorbital abscess [Recovering/Resolving]
  - Optic nerve compression [Recovering/Resolving]
  - Aspergillus infection [Recovering/Resolving]
